FAERS Safety Report 18409544 (Version 1)
Quarter: 2020Q4

REPORT INFORMATION
  Report Type: Report from Study
  Country: GT (occurrence: GT)
  Receive Date: 20201021
  Receipt Date: 20201021
  Transmission Date: 20210114
  Serious: Yes (Other)
  Sender: FDA-Public Use
  Company Number: NVSC2020GT280372

PATIENT
  Age: 44 Year
  Sex: Female

DRUGS (2)
  1. GALVUS MET [Suspect]
     Active Substance: METFORMIN HYDROCHLORIDE\VILDAGLIPTIN
     Indication: PRODUCT USED FOR UNKNOWN INDICATION
     Dosage: 50/850 MG (STARTED 3 YEARS AGO AND STOPPED 1YEAR AGO)
     Route: 065
  2. GALVUS MET [Suspect]
     Active Substance: METFORMIN HYDROCHLORIDE\VILDAGLIPTIN
     Dosage: 50/1000 MG (STARTED 1 YEAR AGO)
     Route: 065

REACTIONS (6)
  - Fluid retention [Unknown]
  - Constipation [Unknown]
  - Malaise [Unknown]
  - Blood glucose increased [Unknown]
  - Blood pressure abnormal [Unknown]
  - Gallbladder disorder [Unknown]
